FAERS Safety Report 20179754 (Version 4)
Quarter: 2024Q2

REPORT INFORMATION
  Report Type: Report from Study
  Country: MX (occurrence: MX)
  Receive Date: 20211214
  Receipt Date: 20240508
  Transmission Date: 20240716
  Serious: Yes (Other)
  Sender: FDA-Public Use
  Company Number: MX-NOVARTISPH-NVSC2021MX284118

PATIENT
  Sex: Female
  Weight: 63 kg

DRUGS (2)
  1. IMATINIB [Suspect]
     Active Substance: IMATINIB
     Indication: Chronic myeloid leukaemia
     Dosage: UNK
     Route: 065
  2. TASIGNA [Suspect]
     Active Substance: NILOTINIB
     Indication: Product used for unknown indication
     Dosage: 400 MG, Q12H (1 CAPSULE OF 200 MG IN THE MORNING AND 2 CAPSULES 200 MG AT NIGH)
     Route: 065
     Dates: end: 20211206

REACTIONS (10)
  - Malaise [Unknown]
  - Haemoglobin decreased [Recovering/Resolving]
  - Drug ineffective [Recovering/Resolving]
  - Investigation abnormal [Unknown]
  - Dyspnoea [Unknown]
  - Somnolence [Unknown]
  - Anaemia [Recovered/Resolved]
  - Tachycardia [Unknown]
  - Dizziness [Unknown]
  - Asthenia [Unknown]
